FAERS Safety Report 5861292-5 (Version None)
Quarter: 2008Q3

REPORT INFORMATION
  Report Type: 
  Country: None (occurrence: None)
  Receive Date: 20080827
  Receipt Date: 20080402
  Transmission Date: 20090109
  Serious: No
  Sender: FDA-Public Use
  Company Number: US-ABBOTT-08P-163-0445250-00

PATIENT
  Sex: Male
  Weight: 118.95 kg

DRUGS (4)
  1. NIASPAN [Suspect]
     Indication: BLOOD CHOLESTEROL INCREASED
     Route: 048
     Dates: start: 20080314
  2. NIASPAN [Suspect]
     Route: 048
     Dates: start: 20080213, end: 20080229
  3. NIASPAN [Suspect]
     Route: 048
     Dates: start: 20080229, end: 20080314
  4. HEART MEDICATION [Concomitant]
     Indication: MYOCARDIAL INFARCTION
     Route: 048

REACTIONS (3)
  - PRURITUS GENERALISED [None]
  - RASH GENERALISED [None]
  - SKIN BURNING SENSATION [None]
